FAERS Safety Report 5716146-1 (Version None)
Quarter: 2008Q2

REPORT INFORMATION
  Report Type: 
  Country: None (occurrence: None)
  Receive Date: 20080423
  Receipt Date: 20080414
  Transmission Date: 20081010
  Serious: No
  Sender: FDA-Public Use
  Company Number: APP200800286

PATIENT
  Age: 84 Year
  Sex: Male

DRUGS (2)
  1. HEPARIN SODIUM [Suspect]
     Indication: ANTICOAGULANT THERAPY
     Dosage: ONCE
     Dates: start: 20080401
  2. HEPARIN SODIUM [Suspect]

REACTIONS (1)
  - DRUG INEFFECTIVE [None]
